FAERS Safety Report 19228587 (Version 2)
Quarter: 2022Q2

REPORT INFORMATION
  Report Type: Spontaneous
  Country: US (occurrence: None)
  Receive Date: 20210506
  Receipt Date: 20220426
  Transmission Date: 20220721
  Serious: No
  Sender: FDA-Public Use
  Company Number: US-ROCHE-2747274

PATIENT
  Sex: Female

DRUGS (3)
  1. ESBRIET [Suspect]
     Active Substance: PIRFENIDONE
     Indication: Idiopathic pulmonary fibrosis
     Route: 048
     Dates: start: 20201215
  2. ESBRIET [Suspect]
     Active Substance: PIRFENIDONE
     Indication: Illness
     Route: 048
     Dates: start: 20210112
  3. ESBRIET [Suspect]
     Active Substance: PIRFENIDONE
     Route: 048
     Dates: start: 20201216

REACTIONS (11)
  - Dizziness [Unknown]
  - Pruritus [Not Recovered/Not Resolved]
  - Fall [Unknown]
  - Paraesthesia [Unknown]
  - Nausea [Unknown]
  - Headache [Unknown]
  - Sunburn [Unknown]
  - Rash [Unknown]
  - Photosensitivity reaction [Unknown]
  - Abdominal pain upper [Unknown]
  - Urinary tract infection [Unknown]
